FAERS Safety Report 23284524 (Version 1)
Quarter: 2023Q4

REPORT INFORMATION
  Report Type: Spontaneous
  Country: US (occurrence: US)
  Receive Date: 20231211
  Receipt Date: 20231211
  Transmission Date: 20240110
  Serious: Yes (Other)
  Sender: FDA-Public Use
  Company Number: US-BRISTOL-MYERS SQUIBB COMPANY-2023-173995

PATIENT
  Age: 64 Year
  Sex: Male

DRUGS (1)
  1. THALOMID [Suspect]
     Active Substance: THALIDOMIDE
     Indication: Plasma cell myeloma
     Route: 048
     Dates: start: 202108

REACTIONS (4)
  - Chest discomfort [Recovered/Resolved]
  - Salivary hypersecretion [Recovered/Resolved]
  - Chest pain [Not Recovered/Not Resolved]
  - Product dose omission issue [Unknown]
